FAERS Safety Report 8579766-5 (Version None)
Quarter: 2012Q3

REPORT INFORMATION
  Report Type: 
  Country: None (occurrence: None)
  Receive Date: 20120808
  Receipt Date: 20120801
  Transmission Date: 20120928
  Serious: Yes (Hospitalization, Other)
  Sender: FDA-Public Use
  Company Number: US-ACTELION-A-NJ2012-69411

PATIENT
  Age: 60 Year
  Sex: Female

DRUGS (8)
  1. PLAVIX [Concomitant]
  2. TRACLEER [Suspect]
     Indication: PULMONARY ARTERIAL HYPERTENSION
     Dosage: 125 MG, BID
     Route: 048
     Dates: start: 20090130
  3. VENTAVIS [Suspect]
     Indication: PULMONARY ARTERIAL HYPERTENSION
     Dosage: UNK
     Route: 055
  4. SILDENAFIL [Concomitant]
  5. ASPIRIN [Concomitant]
  6. LASIX [Concomitant]
  7. COUMADIN [Concomitant]
  8. TRACLEER [Suspect]
     Dosage: UNK
     Route: 048
     Dates: start: 20080701

REACTIONS (2)
  - THROMBOSIS [None]
  - SWELLING [None]
